FAERS Safety Report 10495351 (Version 1)
Quarter: 2014Q3

REPORT INFORMATION
  Report Type: Spontaneous
  Country: US (occurrence: None)
  Receive Date: 20140930
  Receipt Date: 20140930
  Transmission Date: 20150326
  Serious: Yes (Life-Threatening, Hospitalization, Other)
  Sender: FDA-Public Use
  Company Number: KAD201301-000049

PATIENT
  Age: 51 Year
  Sex: Male

DRUGS (5)
  1. INCIVEK [Suspect]
     Active Substance: TELAPREVIR
     Indication: CHRONIC HEPATITIS
  2. PEGINTERFERON ALFA 2A [Suspect]
     Active Substance: PEGINTERFERON ALFA-2A
     Indication: CHRONIC HEPATITIS C
  3. RIBAVIRIN(RIBAVIRIN) [Suspect]
     Active Substance: RIBAVIRIN
     Indication: CHRONIC HEPATITIS C
  4. METFORMIN [Concomitant]
     Active Substance: METFORMIN HYDROCHLORIDE
  5. NADOLOL. [Concomitant]
     Active Substance: NADOLOL

REACTIONS (6)
  - Drug reaction with eosinophilia and systemic symptoms [None]
  - Anxiety [None]
  - Depression [None]
  - Platelet count decreased [None]
  - Blood creatinine increased [None]
  - Pyrexia [None]
